FAERS Safety Report 20054167 (Version 6)
Quarter: 2022Q1

REPORT INFORMATION
  Report Type: Report from Study
  Country: US (occurrence: US)
  Receive Date: 20211110
  Receipt Date: 20220314
  Transmission Date: 20220423
  Serious: No
  Sender: FDA-Public Use
  Company Number: US-NOVARTISTESTPH-NVSC2021US256464

PATIENT
  Age: 38 Year
  Sex: Female

DRUGS (2)
  1. KESIMPTA [Suspect]
     Active Substance: OFATUMUMAB
     Indication: Multiple sclerosis
     Dosage: 0.4 ML, QW (STARTER/ LOADING DOSE BENEATH THE SKIN USUALLY VIA INJECTION)
     Route: 058
     Dates: start: 20211107
  2. KESIMPTA [Suspect]
     Active Substance: OFATUMUMAB
     Dosage: UNK, QMO
     Route: 058
     Dates: start: 20211115

REACTIONS (7)
  - Pain [Unknown]
  - Headache [Unknown]
  - Fatigue [Unknown]
  - Coordination abnormal [Unknown]
  - Dizziness [Unknown]
  - COVID-19 [Recovering/Resolving]
  - Nasal congestion [Recovering/Resolving]

NARRATIVE: CASE EVENT DATE: 20211231
